FAERS Safety Report 10457677 (Version 1)
Quarter: 2014Q3

REPORT INFORMATION
  Report Type: Spontaneous
  Country: FR (occurrence: FR)
  Receive Date: 20140916
  Receipt Date: 20140916
  Transmission Date: 20150326
  Serious: Yes (Life-Threatening, Hospitalization, Other)
  Sender: FDA-Public Use
  Company Number: FR-GILEAD-2014-0115135

PATIENT
  Age: 72 Year
  Sex: Male

DRUGS (7)
  1. CRESTOR [Concomitant]
     Active Substance: ROSUVASTATIN CALCIUM
  2. TENORMIN [Concomitant]
     Active Substance: ATENOLOL
  3. AMLOR [Concomitant]
     Active Substance: AMLODIPINE BESYLATE
  4. STRIBILD [Suspect]
     Active Substance: COBICISTAT\ELVITEGRAVIR\EMTRICITABINE\TENOFOVIR DISOPROXIL FUMARATE
     Indication: HIV INFECTION
     Dosage: 1 DF, QD
     Route: 048
     Dates: start: 20140514, end: 20140717
  5. KARDEGIC [Concomitant]
     Active Substance: ASPIRIN LYSINE
  6. STRIBILD [Suspect]
     Active Substance: COBICISTAT\ELVITEGRAVIR\EMTRICITABINE\TENOFOVIR DISOPROXIL FUMARATE
     Dosage: 1 DF, QD
     Route: 048
     Dates: start: 20140720
  7. DEPAKINE CHRONO [Concomitant]
     Active Substance: VALPROATE SODIUM

REACTIONS (2)
  - Angina pectoris [Recovered/Resolved]
  - Coronary artery occlusion [Recovered/Resolved with Sequelae]

NARRATIVE: CASE EVENT DATE: 20140717
